FAERS Safety Report 4414528-1 (Version None)
Quarter: 2004Q2

REPORT INFORMATION
  Report Type: 
  Country: None (occurrence: None)
  Receive Date: 20040621
  Receipt Date: 20031201
  Transmission Date: 20050107
  Serious: Yes (Death, Other)
  Sender: FDA-Public Use
  Company Number: USA-2003-0011903

PATIENT
  Age: 51 Year
  Sex: Male
  Weight: 107 kg

DRUGS (14)
  1. OXYCODONE HCL [Suspect]
  2. ALPRAZOLAM [Suspect]
  3. BENZODIAZEPINE DERIVATIVES [Suspect]
     Dosage: MG
  4. VENLAFAXINE HCL [Suspect]
     Dosage: MG
  5. NICOTINE [Suspect]
     Dosage: MG
  6. MENTHOL (MENTHOL) [Suspect]
     Dosage: MG
  7. ZOCOR [Concomitant]
  8. XENICAL [Concomitant]
  9. LOTREL [Concomitant]
  10. NEURONTIN [Concomitant]
  11. SEROQUEL [Concomitant]
  12. DOXAZOSIN [Concomitant]
  13. WELLBUTRIN [Concomitant]
  14. EFFEXOR [Concomitant]

REACTIONS (2)
  - ACCIDENTAL OVERDOSE [None]
  - DRUG ABUSER [None]
